FAERS Safety Report 7983535-4 (Version None)
Quarter: 2011Q4

REPORT INFORMATION
  Report Type: 
  Country: None (occurrence: None)
  Receive Date: 20111215
  Receipt Date: 20111206
  Transmission Date: 20120403
  Serious: Yes (Other)
  Sender: FDA-Public Use
  Company Number: US-ASTRAZENECA-2011SE73812

PATIENT
  Sex: Female

DRUGS (2)
  1. PREGNASONE [Concomitant]
  2. SYMBICORT [Suspect]
     Route: 055

REACTIONS (3)
  - BONE DENSITY DECREASED [None]
  - WEIGHT DECREASED [None]
  - LOWER LIMB FRACTURE [None]
